FAERS Safety Report 22887907 (Version 4)
Quarter: 2023Q4

REPORT INFORMATION
  Report Type: Report from Study
  Country: JP (occurrence: JP)
  Receive Date: 20230831
  Receipt Date: 20231228
  Transmission Date: 20240110
  Serious: Yes (Hospitalization)
  Sender: FDA-Public Use
  Company Number: JP-MTPC-MTPC2023-0020251

PATIENT
  Age: 85 Year
  Sex: Male

DRUGS (19)
  1. CANAGLIFLOZIN [Suspect]
     Active Substance: CANAGLIFLOZIN
     Indication: Diabetes mellitus
     Dosage: 100 MILLIGRAM, QD
     Route: 048
     Dates: start: 20230616, end: 20230804
  2. CANAGLIFLOZIN [Suspect]
     Active Substance: CANAGLIFLOZIN
     Indication: Type 2 diabetes mellitus
     Route: 048
  3. CANAGLIFLOZIN [Suspect]
     Active Substance: CANAGLIFLOZIN
     Indication: Chronic kidney disease
     Route: 048
  4. DOTINURAD [Concomitant]
     Active Substance: DOTINURAD
     Indication: Hyperuricaemia
     Dosage: 2 MILLIGRAM, QD
     Route: 048
  5. LAC B [BIFIDOBACTERIUM BIFIDUM] [Concomitant]
     Indication: Constipation
     Dosage: 3 GRAM, QD
     Route: 048
  6. LAC B [BIFIDOBACTERIUM BIFIDUM] [Concomitant]
     Indication: Dyspepsia
  7. PANCRELIPASE [Concomitant]
     Active Substance: PANCRELIPASE
     Indication: Gastrooesophageal reflux disease
     Dosage: 900 MILLIGRAM, QD
     Route: 048
  8. HERBALS [Concomitant]
     Active Substance: HERBALS
     Indication: Gastrooesophageal reflux disease
     Dosage: 2.5 GRAM, QD
     Route: 048
  9. TENELIA OD [Concomitant]
     Indication: Diabetes mellitus
     Dosage: 20 MILLIGRAM, QD
     Route: 048
  10. TENELIA OD [Concomitant]
     Indication: Type 2 diabetes mellitus
  11. TENELIA OD [Concomitant]
     Indication: Chronic kidney disease
  12. ONEALFA [Concomitant]
     Active Substance: ALFACALCIDOL
     Indication: Osteoporosis
     Dosage: 1 MICROGRAM, QD
     Route: 048
  13. SODIUM FERROUS CITRATE [Concomitant]
     Active Substance: SODIUM FERROUS CITRATE
     Indication: Iron deficiency anaemia
     Dosage: 50 MILLIGRAM, QD
     Route: 048
  14. HERBALS [Concomitant]
     Active Substance: HERBALS
     Indication: Constipation
     Dosage: 2.5 GRAM, QD
     Route: 048
  15. HERBALS [Concomitant]
     Active Substance: HERBALS
     Indication: Dyspepsia
  16. DICLOFENAC SODIUM [Concomitant]
     Active Substance: DICLOFENAC\DICLOFENAC SODIUM
     Indication: Spinal compression fracture
     Dosage: 75 MILLIGRAM, QD
     Route: 061
  17. VADADUSTAT [Concomitant]
     Active Substance: VADADUSTAT
     Dosage: 450 MILLIGRAM, QD
     Route: 048
  18. CAMOSTAT MESYLATE [Concomitant]
     Active Substance: CAMOSTAT MESYLATE
     Dosage: 300 MILLIGRAM, QD
     Route: 048
  19. MINODRONIC ACID [Concomitant]
     Active Substance: MINODRONIC ACID
     Dosage: 1.66 MILLIGRAM, QD
     Route: 048

REACTIONS (4)
  - Decreased appetite [Recovered/Resolved]
  - Heat illness [Recovered/Resolved]
  - Chronic kidney disease [Recovered/Resolved]
  - Dehydration [Recovered/Resolved]

NARRATIVE: CASE EVENT DATE: 20230724
